FAERS Safety Report 8220003-9 (Version None)
Quarter: 2012Q1

REPORT INFORMATION
  Report Type: 
  Country: None (occurrence: None)
  Receive Date: 20120301
  Receipt Date: 20110103
  Transmission Date: 20120608
  Serious: Yes (Other)
  Sender: FDA-Public Use
  Company Number: 253641USA

PATIENT
  Sex: Female

DRUGS (7)
  1. CHONDROITIN [Concomitant]
  2. GLUCOSAMINE [Concomitant]
  3. OMEPRAZOLE [Concomitant]
  4. FEXOFENADINE [Concomitant]
  5. FLUTICASONE PROPIONATE [Concomitant]
  6. NITROFURANTOIN [Suspect]
     Indication: URINARY TRACT INFECTION
     Dosage: (100 MG), ORAL
     Route: 048
     Dates: end: 20100922
  7. HYCOSAMINE ER [Concomitant]

REACTIONS (6)
  - PULMONARY FIBROSIS [None]
  - DYSPNOEA [None]
  - COUGH [None]
  - CREPITATIONS [None]
  - HYPOXIA [None]
  - PYREXIA [None]
